FAERS Safety Report 4317740-5 (Version None)
Quarter: 2004Q1

REPORT INFORMATION
  Report Type: 
  Country: None (occurrence: None)
  Receive Date: 20040315
  Receipt Date: 20040303
  Transmission Date: 20041129
  Serious: Yes (Hospitalization)
  Sender: FDA-Public Use
  Company Number: PHBS2004JP03137

PATIENT
  Age: 67 Year
  Sex: Male
  Weight: 57 kg

DRUGS (6)
  1. PHENTOLAMINE MESYLATE [Suspect]
     Indication: ERECTILE DYSFUNCTION
     Dosage: 60 UL/DAY
     Route: 017
     Dates: start: 20010716, end: 20010718
  2. PAPAVERINE HYDROCHLORIDE [Suspect]
     Indication: ERECTILE DYSFUNCTION
     Dosage: 120 UL/DAY
     Route: 017
     Dates: start: 20010716, end: 20010718
  3. MILRINONE [Suspect]
     Indication: ERECTILE DYSFUNCTION
     Dosage: 60 UL/DAY
     Route: 017
     Dates: start: 20010716, end: 20010718
  4. ATROPINE SULFATE [Suspect]
     Indication: ERECTILE DYSFUNCTION
     Dosage: 30 UL/DAY
     Route: 017
     Dates: start: 20010716, end: 20010718
  5. PROSTARMON F [Suspect]
     Indication: ERECTILE DYSFUNCTION
     Dosage: 3.2 UG/DAY
     Route: 017
     Dates: start: 20010716, end: 20010718
  6. AMLODIPINE [Concomitant]
     Indication: HYPERTENSION

REACTIONS (2)
  - PRIAPISM [None]
  - SURGERY [None]
